FAERS Safety Report 8470544 (Version 2)
Quarter: 2013Q3

REPORT INFORMATION
  Report Type: Report from Study
  Country: FR (occurrence: FR)
  Receive Date: 20120321
  Receipt Date: 20130814
  Transmission Date: 20140515
  Serious: Yes (Hospitalization)
  Sender: FDA-Public Use
  Company Number: FR-ROCHE-1049284

PATIENT
  Age: 63 Year
  Sex: Male

DRUGS (4)
  1. VEMURAFENIB [Suspect]
     Indication: MALIGNANT MELANOMA
     Route: 048
     Dates: start: 20120221
  2. VEMURAFENIB [Suspect]
     Route: 048
     Dates: start: 20120326
  3. FLUDEX (FRANCE) [Concomitant]
     Indication: HYPERTENSION
     Route: 048
  4. ISOPTINE [Concomitant]
     Route: 048

REACTIONS (1)
  - Dermatitis exfoliative [Recovered/Resolved]
